FAERS Safety Report 5224530-8 (Version None)
Quarter: 2007Q1

REPORT INFORMATION
  Report Type: 
  Country: None (occurrence: None)
  Receive Date: 20070130
  Receipt Date: 20070119
  Transmission Date: 20070707
  Serious: Yes (Other)
  Sender: FDA-Public Use
  Company Number: US-PFIZER INC-2007005993

PATIENT
  Sex: Female
  Weight: 81.6 kg

DRUGS (3)
  1. LYRICA [Suspect]
     Indication: FIBROMYALGIA
  2. THYROID HORMONES [Concomitant]
  3. ALL OTHER THERAPEUTIC PRODUCTS [Concomitant]

REACTIONS (4)
  - CONSTIPATION [None]
  - DYSPHAGIA [None]
  - LYMPHADENOPATHY [None]
  - PHARYNGEAL OEDEMA [None]
